FAERS Safety Report 10384816 (Version 1)
Quarter: 2014Q3

REPORT INFORMATION
  Report Type: Spontaneous
  Country: IT (occurrence: None)
  Receive Date: 20140812
  Receipt Date: 20140812
  Transmission Date: 20150326
  Serious: Yes (Hospitalization)
  Sender: FDA-Public Use
  Company Number: AUR-APL-2014-08347

PATIENT
  Age: 65 Year
  Sex: Male

DRUGS (1)
  1. AMOXICILLIN TABLET (AMOXICILLIN) TABLET [Suspect]
     Active Substance: AMOXICILLIN
     Indication: DENTAL OPERATION
     Dosage: TOTAL
     Route: 048
     Dates: start: 20140709, end: 20140709

REACTIONS (3)
  - Loss of consciousness [None]
  - Rash [None]
  - Malaise [None]

NARRATIVE: CASE EVENT DATE: 20140709
